FAERS Safety Report 25665290 (Version 1)
Quarter: 2025Q3

REPORT INFORMATION
  Report Type: Spontaneous
  Country: US (occurrence: US)
  Receive Date: 20250811
  Receipt Date: 20250811
  Transmission Date: 20251020
  Serious: Yes (Other)
  Sender: MYLAN
  Company Number: US-MYLANLABS-2025M1068110

PATIENT
  Age: 48 Year
  Sex: Male

DRUGS (6)
  1. AMLODIPINE [Suspect]
     Active Substance: AMLODIPINE BESYLATE
     Indication: Secondary hypertension
  2. METOPROLOL [Suspect]
     Active Substance: METOPROLOL
     Indication: Secondary hypertension
  3. HYDRALAZINE [Suspect]
     Active Substance: HYDRALAZINE HYDROCHLORIDE
     Indication: Secondary hypertension
  4. LOSARTAN [Suspect]
     Active Substance: LOSARTAN
     Indication: Secondary hypertension
  5. TERAZOSIN [Suspect]
     Active Substance: TERAZOSIN HYDROCHLORIDE
     Indication: Secondary hypertension
  6. NICARDIPINE [Concomitant]
     Active Substance: NICARDIPINE
     Indication: Secondary hypertension

REACTIONS (2)
  - Rebound effect [Unknown]
  - Hypertensive crisis [Unknown]
